FAERS Safety Report 16651762 (Version 3)
Quarter: 2021Q3

REPORT INFORMATION
  Report Type: Spontaneous
  Country: US (occurrence: US)
  Receive Date: 20190731
  Receipt Date: 20210812
  Transmission Date: 20211014
  Serious: No
  Sender: FDA-Public Use
  Company Number: US-PFIZER INC-2019304209

PATIENT
  Age: 58 Year
  Sex: Male
  Weight: 79.38 kg

DRUGS (4)
  1. LYRICA [Suspect]
     Active Substance: PREGABALIN
     Indication: NERVE INJURY
  2. LYRICA [Suspect]
     Active Substance: PREGABALIN
     Dosage: 150 MG
  3. LYRICA [Suspect]
     Active Substance: PREGABALIN
     Indication: PAIN
     Dosage: 75 MG
  4. LYRICA [Suspect]
     Active Substance: PREGABALIN
     Indication: NEURALGIA
     Dosage: 300 MG, DAILY (75MG CAPSULES TWICE DAILY IN AM AND AT NOON AND 150MG CAPSULE)
     Route: 048

REACTIONS (2)
  - Intentional product use issue [Unknown]
  - Arthralgia [Unknown]
